FAERS Safety Report 7659588-X (Version None)
Quarter: 2011Q3

REPORT INFORMATION
  Report Type: 
  Country: None (occurrence: None)
  Receive Date: 20110805
  Receipt Date: 20110801
  Transmission Date: 20111222
  Serious: Yes (Other)
  Sender: FDA-Public Use
  Company Number: FR-PFIZER INC-2011096810

PATIENT
  Age: 53 Year
  Sex: Female
  Weight: 62 kg

DRUGS (10)
  1. ALDACTONE [Concomitant]
     Indication: HYPERTENSION
     Dosage: 50 MG, 1X/DAY
  2. LYRICA [Suspect]
     Indication: NEUROPATHY PERIPHERAL
     Dosage: 50 MG, 1X/DAY IN EVENING
     Dates: start: 20100920
  3. ACETAMINOPHEN [Suspect]
     Dosage: UNK
  4. DAFLON [Concomitant]
     Dosage: UNK
  5. ASPIRIN [Concomitant]
     Indication: HYPERTENSION
     Dosage: 75 MG, 1X/DAY
  6. CELECTOL [Concomitant]
     Indication: HYPERTENSION
     Dosage: 200 MG, 1X/DAY
  7. ATORVASTATIN CALCIUM [Concomitant]
     Dosage: 10 MG, 1X/DAY
  8. LERCANIDIPINE [Concomitant]
     Dosage: UNK
  9. LOVENOX [Suspect]
     Indication: SURGERY
     Dosage: 0.4 (UNITS UNKNOWN); UNK
     Dates: start: 20110707
  10. CLONAZEPAM [Suspect]
     Dosage: UNK

REACTIONS (2)
  - ANTI-PLATELET ANTIBODY POSITIVE [None]
  - THROMBOCYTOPENIA [None]
